FAERS Safety Report 6094198-X (Version None)
Quarter: 2009Q1

REPORT INFORMATION
  Report Type: 
  Country: None (occurrence: None)
  Receive Date: 20090224
  Receipt Date: 20090224
  Transmission Date: 20090719
  Serious: Yes (Other)
  Sender: FDA-Public Use
  Company Number: None

PATIENT
  Age: 19 Year
  Sex: Male
  Weight: 115.6672 kg

DRUGS (3)
  1. BACTRIM [Suspect]
  2. SULFAMETHOXAZOLE AND TRIMETHOPRIM DOUBLE STRENGTH [Suspect]
     Indication: STAPHYLOCOCCAL INFECTION
     Dosage: 1 TABLET 2 TIMES DAILY PO
     Route: 048
     Dates: start: 20090219, end: 20090219
  3. SULFAMETHOXAZOLE AND TRIMETHOPRIM DOUBLE STRENGTH [Suspect]
     Indication: STAPHYLOCOCCAL INFECTION
     Dosage: 1 TABLET 2 TIMES DAILY PO
     Route: 048
     Dates: start: 20090219, end: 20090219

REACTIONS (13)
  - ACNE [None]
  - ARTHROPATHY [None]
  - BODY TEMPERATURE INCREASED [None]
  - CONDITION AGGRAVATED [None]
  - DIZZINESS [None]
  - DRUG HYPERSENSITIVITY [None]
  - MUSCLE SPASMS [None]
  - OROPHARYNGEAL PAIN [None]
  - PHOTOPHOBIA [None]
  - SKIN DISCOLOURATION [None]
  - TREMOR [None]
  - VIRAL INFECTION [None]
  - VOMITING [None]
